FAERS Safety Report 24846515 (Version 1)
Quarter: 2025Q1

REPORT INFORMATION
  Report Type: Spontaneous
  Country: US (occurrence: US)
  Receive Date: 20250115
  Receipt Date: 20250115
  Transmission Date: 20250409
  Serious: Yes (Hospitalization, Other)
  Sender: NOVARTIS
  Company Number: US-002147023-NVSC2025US006395

PATIENT
  Age: 14 Year
  Sex: Male

DRUGS (30)
  1. ELTROMBOPAG [Suspect]
     Active Substance: ELTROMBOPAG
     Indication: Thrombocytopenia
     Dosage: 75 MG, QD (ON DAY +171)
     Route: 048
  2. CYTARABINE [Suspect]
     Active Substance: CYTARABINE
     Indication: Philadelphia positive acute lymphocytic leukaemia
     Route: 037
  3. CYTARABINE [Suspect]
     Active Substance: CYTARABINE
     Route: 042
  4. VINCRISTINE [Suspect]
     Active Substance: VINCRISTINE
     Indication: Philadelphia positive acute lymphocytic leukaemia
     Route: 065
  5. VINCRISTINE [Suspect]
     Active Substance: VINCRISTINE
     Route: 065
  6. DAUNORUBICIN [Suspect]
     Active Substance: DAUNORUBICIN
     Indication: Philadelphia positive acute lymphocytic leukaemia
     Route: 065
  7. DAUNORUBICIN [Suspect]
     Active Substance: DAUNORUBICIN
     Route: 065
  8. PREDNISONE [Suspect]
     Active Substance: PREDNISONE
     Indication: Philadelphia positive acute lymphocytic leukaemia
     Dosage: 30 MG/M2, BID (ON DAYS 1?14)
     Route: 065
  9. PREDNISONE [Suspect]
     Active Substance: PREDNISONE
     Route: 065
  10. PEGASPARGASE [Suspect]
     Active Substance: PEGASPARGASE
     Indication: Philadelphia positive acute lymphocytic leukaemia
     Route: 065
  11. METHOTREXATE [Suspect]
     Active Substance: METHOTREXATE
     Indication: Philadelphia positive acute lymphocytic leukaemia
     Route: 037
  12. METHOTREXATE [Suspect]
     Active Substance: METHOTREXATE
     Route: 037
  13. METHOTREXATE [Suspect]
     Active Substance: METHOTREXATE
     Route: 037
  14. CYCLOPHOSPHAMIDE [Suspect]
     Active Substance: CYCLOPHOSPHAMIDE
     Indication: Philadelphia positive acute lymphocytic leukaemia
     Route: 042
  15. CYCLOPHOSPHAMIDE [Suspect]
     Active Substance: CYCLOPHOSPHAMIDE
     Indication: Prophylaxis against graft versus host disease
  16. MERCAPTOPURINE [Suspect]
     Active Substance: MERCAPTOPURINE
     Indication: Philadelphia positive acute lymphocytic leukaemia
     Dosage: 60 MG/M2, QD (ON DAYS 1?28)
     Route: 048
  17. DASATINIB [Suspect]
     Active Substance: DASATINIB
     Indication: Philadelphia positive acute lymphocytic leukaemia
     Dosage: 80 MG/M2, QD (ON DAYS 1?28)
     Route: 048
  18. TACROLIMUS [Suspect]
     Active Substance: TACROLIMUS
     Indication: Prophylaxis against graft versus host disease
     Route: 065
  19. MYCOPHENOLATE MOFETIL [Suspect]
     Active Substance: MYCOPHENOLATE MOFETIL
     Indication: Prophylaxis against graft versus host disease
     Route: 065
  20. ROMIPLOSTIM [Suspect]
     Active Substance: ROMIPLOSTIM
     Indication: Immune thrombocytopenia
     Dosage: UNK UNK, QW (10 ?G/KG)
     Route: 058
  21. RITUXIMAB [Suspect]
     Active Substance: RITUXIMAB
     Indication: Immune thrombocytopenia
     Route: 042
  22. DECITABINE [Suspect]
     Active Substance: DECITABINE
     Indication: Immune thrombocytopenia
     Dosage: 15 MG/M2, QD (FRO 3 DAYS)
     Route: 042
  23. AVATROMBOPAG [Suspect]
     Active Substance: AVATROMBOPAG
     Indication: Immune thrombocytopenia
     Dosage: 20 MG, QD
     Route: 065
  24. AVATROMBOPAG [Suspect]
     Active Substance: AVATROMBOPAG
     Route: 065
  25. AVATROMBOPAG [Suspect]
     Active Substance: AVATROMBOPAG
     Route: 065
  26. AVATROMBOPAG [Suspect]
     Active Substance: AVATROMBOPAG
     Route: 065
  27. AVATROMBOPAG [Suspect]
     Active Substance: AVATROMBOPAG
     Dosage: 20 MG, QD
     Route: 065
  28. BLINATUMOMAB [Concomitant]
     Active Substance: BLINATUMOMAB
     Indication: Philadelphia positive acute lymphocytic leukaemia
     Route: 042
  29. BLINATUMOMAB [Concomitant]
     Active Substance: BLINATUMOMAB
     Route: 042
  30. BLINATUMOMAB [Concomitant]
     Active Substance: BLINATUMOMAB
     Route: 042

REACTIONS (2)
  - Thrombocytopenia [Unknown]
  - Drug ineffective for unapproved indication [Unknown]
